FAERS Safety Report 17558755 (Version 12)
Quarter: 2021Q4

REPORT INFORMATION
  Report Type: Other
  Country: CA (occurrence: None)
  Receive Date: 20200319
  Receipt Date: 20211210
  Transmission Date: 20220304
  Serious: Yes (Other)
  Sender: FDA-Public Use
  Company Number: CA-ROCHE-2565352

PATIENT
  Age: 34 Year
  Sex: Male

DRUGS (12)
  1. OCREVUS [Suspect]
     Active Substance: OCRELIZUMAB
     Indication: Relapsing-remitting multiple sclerosis
     Dosage: 300 MG AT DAY 0 AND 14, THEN 600 MG EVERY 6 MONTH
     Route: 042
     Dates: start: 20200214
  2. OCREVUS [Suspect]
     Active Substance: OCRELIZUMAB
     Indication: Multiple sclerosis
     Dosage: 300MG IN 500ML NS; FORMULATION-30MG/ML
     Route: 042
     Dates: start: 20211116
  3. MORPHINE [Concomitant]
     Active Substance: MORPHINE
  4. GRAVOL [Concomitant]
     Active Substance: DIMENHYDRINATE
     Route: 042
  5. GABAPENTIN [Concomitant]
     Active Substance: GABAPENTIN
  6. HYDROMORPHONE [Concomitant]
     Active Substance: HYDROMORPHONE
  7. AMANTADINE [Concomitant]
     Active Substance: AMANTADINE
  8. ONDANSETRON [Concomitant]
     Active Substance: ONDANSETRON
  9. AZITHROMYCIN [Concomitant]
     Active Substance: AZITHROMYCIN
  10. MIRTAZAPINE [Concomitant]
     Active Substance: MIRTAZAPINE
  11. LAMOTRIGINE [Concomitant]
     Active Substance: LAMOTRIGINE
  12. ZOPICLONE [Concomitant]
     Active Substance: ZOPICLONE

REACTIONS (25)
  - Malaise [Not Recovered/Not Resolved]
  - Pallor [Not Recovered/Not Resolved]
  - Balance disorder [Not Recovered/Not Resolved]
  - Delirium [Not Recovered/Not Resolved]
  - Constipation [Not Recovered/Not Resolved]
  - Pneumonia [Not Recovered/Not Resolved]
  - Stoma site infection [Not Recovered/Not Resolved]
  - Pyrexia [Not Recovered/Not Resolved]
  - Hypersomnia [Not Recovered/Not Resolved]
  - Body temperature decreased [Not Recovered/Not Resolved]
  - Sedation [Not Recovered/Not Resolved]
  - Pain [Unknown]
  - Dyspnoea [Not Recovered/Not Resolved]
  - Cough [Not Recovered/Not Resolved]
  - Feeling abnormal [Not Recovered/Not Resolved]
  - Diarrhoea [Not Recovered/Not Resolved]
  - Pharyngitis streptococcal [Recovered/Resolved]
  - Stoma site pain [Not Recovered/Not Resolved]
  - Fatigue [Not Recovered/Not Resolved]
  - Pain [Not Recovered/Not Resolved]
  - Infusion related reaction [Recovered/Resolved]
  - Hypoaesthesia [Not Recovered/Not Resolved]
  - Incision site pain [Unknown]
  - Infusion related reaction [Recovered/Resolved]
  - Migraine [Not Recovered/Not Resolved]

NARRATIVE: CASE EVENT DATE: 20200214
